FAERS Safety Report 10284147 (Version 1)
Quarter: 2014Q3

REPORT INFORMATION
  Report Type: Spontaneous
  Country: CN (occurrence: None)
  Receive Date: 20140703
  Receipt Date: 20140703
  Transmission Date: 20150326
  Serious: Yes (Hospitalization)
  Sender: FDA-Public Use
  Company Number: B1004463A

PATIENT
  Age: 61 Year
  Sex: Male
  Weight: 69.85 kg

DRUGS (3)
  1. REBOXETINE [Concomitant]
     Active Substance: REBOXETINE
  2. TANDOSPIRONE CITRATE [Concomitant]
     Active Substance: TANDOSPIRONE CITRATE
  3. PAROXETINE HYDROCHLORIDE. [Suspect]
     Active Substance: PAROXETINE HYDROCHLORIDE
     Indication: DEPRESSION
     Dosage: 20 MG/TWICE PER DAY
     Route: 048
     Dates: start: 20121020, end: 20121218

REACTIONS (4)
  - Decreased appetite [None]
  - Aspartate aminotransferase increased [None]
  - Hepatic function abnormal [None]
  - Alanine aminotransferase increased [None]

NARRATIVE: CASE EVENT DATE: 20121219
